FAERS Safety Report 7641455-9 (Version None)
Quarter: 2011Q3

REPORT INFORMATION
  Report Type: 
  Country: None (occurrence: None)
  Receive Date: 20110722
  Receipt Date: 20110706
  Transmission Date: 20111222
  Serious: Yes (Death, Life-Threatening, Other)
  Sender: FDA-Public Use
  Company Number: 2011MA008477

PATIENT
  Age: 30 Year
  Sex: Female

DRUGS (2)
  1. LORAZEPAM [Suspect]
     Indication: COMPLETED SUICIDE
     Dosage: 1X
  2. BROMISOVALUM [Suspect]
     Indication: COMPLETED SUICIDE
     Dosage: 40 MG; 1X

REACTIONS (7)
  - CARDIAC ARREST [None]
  - GENERAL PHYSICAL HEALTH DETERIORATION [None]
  - LOSS OF CONSCIOUSNESS [None]
  - CIRCULATORY COLLAPSE [None]
  - COMPLETED SUICIDE [None]
  - POISONING [None]
  - INCORRECT DOSE ADMINISTERED [None]
